FAERS Safety Report 17137494 (Version 4)
Quarter: 2020Q1

REPORT INFORMATION
  Report Type: Report from Study
  Country: None (occurrence: BE)
  Receive Date: 20191210
  Receipt Date: 20200109
  Transmission Date: 20200409
  Serious: Yes (Hospitalization, Other)
  Sender: FDA-Public Use
  Company Number: BE-ABBVIE-19K-013-3184468-00

PATIENT
  Sex: Male

DRUGS (5)
  1. DUODOPA [Suspect]
     Active Substance: CARBIDOPA\LEVODOPA
     Dosage: DOSES CONTINUOUSLY MONITORED AND ADAPTED
     Route: 050
     Dates: start: 20140310, end: 20190416
  2. DUODOPA [Suspect]
     Active Substance: CARBIDOPA\LEVODOPA
     Indication: PARKINSON^S DISEASE
     Dosage: MD=2.5ML, CD=2ML/HR DURING 16HRS, ED=0.8ML
     Route: 050
     Dates: start: 20080310, end: 20140310
  3. DUODOPA [Suspect]
     Active Substance: CARBIDOPA\LEVODOPA
     Dosage: MD=3.4ML, CD=2.6 ML/HR AND 3.4 ML/HR DURING 16HRS, ED=2.4ML, ND=2.3ML/HR DURING 8HRS
     Route: 050
     Dates: start: 20190416
  4. PROLOPA [Concomitant]
     Active Substance: BENSERAZIDE\LEVODOPA
     Indication: PARKINSON^S DISEASE
     Dosage: FORM STRENGTH: 200MG/50MG
     Route: 048
  5. PROLOPA [Concomitant]
     Active Substance: BENSERAZIDE\LEVODOPA
     Dosage: RESCUE MEDICATION: FS: 200MG/50MG; UD: 0.5 UNIT, 2 TIMES A DAY + 1 UNIT, 3 TIMES A DAY

REACTIONS (3)
  - Fluid retention [Unknown]
  - Ileus paralytic [Unknown]
  - Tremor [Unknown]
